FAERS Safety Report 6822924-8 (Version None)
Quarter: 2010Q3

REPORT INFORMATION
  Report Type: 
  Country: None (occurrence: None)
  Receive Date: 20100708
  Receipt Date: 20100623
  Transmission Date: 20110219
  Serious: Yes (Other)
  Sender: FDA-Public Use
  Company Number: DE-CUBIST-2010S1000706

PATIENT
  Age: 81 Year
  Sex: Male

DRUGS (4)
  1. CUBICIN [Suspect]
     Indication: SEPSIS
     Route: 042
     Dates: start: 20100622
  2. AMINO ACIDS [Concomitant]
     Indication: PRODUCT USED FOR UNKNOWN INDICATION
  3. POTASSIUM CHLORIDE [Concomitant]
     Indication: PRODUCT USED FOR UNKNOWN INDICATION
  4. INSULIN [Concomitant]
     Indication: PRODUCT USED FOR UNKNOWN INDICATION

REACTIONS (6)
  - HEADACHE [None]
  - HYPERTENSIVE CRISIS [None]
  - PALLOR [None]
  - TACHYCARDIA [None]
  - TACHYPNOEA [None]
  - TREMOR [None]
